FAERS Safety Report 9134966 (Version 2)
Quarter: 2013Q2

REPORT INFORMATION
  Report Type: Spontaneous
  Country: US (occurrence: US)
  Receive Date: 20130304
  Receipt Date: 20130411
  Transmission Date: 20140414
  Serious: Yes (Other)
  Sender: FDA-Public Use
  Company Number: US-PFIZER INC-2013071914

PATIENT
  Age: 69 Year
  Sex: Female

DRUGS (8)
  1. AROMASIN [Suspect]
     Indication: BREAST CANCER
     Dosage: 25 MG, UNK
     Dates: start: 20090116, end: 20130207
  2. LEVOTHYROXINE [Concomitant]
     Dosage: UNK
  3. PRAVASTATIN [Concomitant]
     Dosage: UNK
  4. VITAMIN D3 [Concomitant]
     Dosage: UNK
  5. OXYBUTYNIN [Concomitant]
     Dosage: UNK
  6. IBUPROFEN [Concomitant]
     Dosage: UNK
  7. ASPIRIN ^BAYER^ [Concomitant]
     Dosage: UNK
  8. NEXIUM [Concomitant]
     Dosage: UNK

REACTIONS (4)
  - Second primary malignancy [Unknown]
  - Breast cancer [Unknown]
  - Blood pressure increased [Unknown]
  - Cough [Unknown]
